FAERS Safety Report 6644699-8 (Version None)
Quarter: 2010Q1

REPORT INFORMATION
  Report Type: 
  Country: None (occurrence: None)
  Receive Date: 20100322
  Receipt Date: 20100315
  Transmission Date: 20100710
  Serious: Yes (Other)
  Sender: FDA-Public Use
  Company Number: SI-BRISTOL-MYERS SQUIBB COMPANY-15021009

PATIENT
  Sex: Male

DRUGS (4)
  1. APROVEL TABS 150 MG [Suspect]
     Indication: HYPERTENSION
     Route: 048
     Dates: start: 20100313, end: 20100313
  2. ASPIRIN [Concomitant]
     Dosage: ASPIRIN 100
  3. GLUCOVANCE [Concomitant]
  4. DIUVER [Concomitant]

REACTIONS (1)
  - ASPHYXIA [None]
